FAERS Safety Report 16364968 (Version 1)
Quarter: 2019Q2

REPORT INFORMATION
  Report Type: Spontaneous
  Country: US (occurrence: US)
  Receive Date: 20190529
  Receipt Date: 20190529
  Transmission Date: 20190711
  Serious: Yes (Hospitalization)
  Sender: FDA-Public Use
  Company Number: US-UNICHEM PHARMACEUTICALS (USA) INC-UCM201905-000175

PATIENT
  Age: 57 Year
  Sex: Male

DRUGS (2)
  1. AMLODIPINE [Suspect]
     Active Substance: AMLODIPINE BESYLATE
  2. BENAZEPRIL [Suspect]
     Active Substance: BENAZEPRIL HYDROCHLORIDE

REACTIONS (4)
  - Shock [Recovered/Resolved]
  - Acute kidney injury [Recovered/Resolved]
  - Cardiac arrest [Recovered/Resolved]
  - Suicide attempt [Recovered/Resolved]
